FAERS Safety Report 10100412 (Version 1)
Quarter: 2014Q2

REPORT INFORMATION
  Report Type: Report from Study
  Country: GB (occurrence: GB)
  Receive Date: 20140423
  Receipt Date: 20140423
  Transmission Date: 20141212
  Serious: Yes (Hospitalization)
  Sender: FDA-Public Use
  Company Number: GB-BRISTOL-MYERS SQUIBB COMPANY-20630075

PATIENT
  Age: 55 Year
  Sex: Female

DRUGS (10)
  1. ETOPOSIDE [Suspect]
     Indication: SMALL CELL LUNG CANCER
     Dates: start: 20140121, end: 20140321
  2. CARBOPLATIN [Suspect]
     Indication: SMALL CELL LUNG CANCER
     Dates: start: 20140121, end: 20140321
  3. TIOTROPIUM BROMIDE [Concomitant]
     Route: 045
     Dates: start: 201401
  4. FORMOTEROL [Concomitant]
     Route: 045
     Dates: start: 201401
  5. SALBUTAMOL [Concomitant]
     Route: 045
     Dates: start: 20131029
  6. OMEPRAZOLE [Concomitant]
     Route: 048
     Dates: start: 20131230
  7. DEXAMETHASONE [Concomitant]
     Route: 048
     Dates: start: 20140105
  8. CO-AMILOFRUSE [Concomitant]
     Dosage: 1DF:5/40 UNIT NOS.
     Route: 048
     Dates: start: 20130602, end: 20140411
  9. LOSARTAN [Concomitant]
     Dates: start: 201301
  10. PARACETAMOL [Concomitant]
     Route: 048

REACTIONS (3)
  - Alanine aminotransferase increased [Not Recovered/Not Resolved]
  - Dyspnoea [Recovered/Resolved]
  - Swelling face [Recovered/Resolved]
